FAERS Safety Report 8323216-0 (Version None)
Quarter: 2012Q2

REPORT INFORMATION
  Report Type: 
  Country: None (occurrence: None)
  Receive Date: 20120430
  Receipt Date: 20120423
  Transmission Date: 20120825
  Serious: Yes (Other)
  Sender: FDA-Public Use
  Company Number: US-ASTRAZENECA-2011SE10159

PATIENT
  Age: 54 Year
  Sex: Female
  Weight: 52.2 kg

DRUGS (20)
  1. SEROQUEL XR [Suspect]
     Indication: BIPOLAR DISORDER
     Route: 048
     Dates: start: 20070101
  2. ZOCOR [Concomitant]
     Indication: BLOOD CHOLESTEROL ABNORMAL
     Route: 048
  3. HYDROXYZINE [Concomitant]
  4. SEROQUEL XR [Suspect]
     Route: 048
  5. NEXIUM [Suspect]
     Route: 048
  6. RESTORIL [Concomitant]
  7. GABAPENTIN [Concomitant]
  8. BATRANS [Concomitant]
     Dosage: TOTAL DAILY DOSE 20MCG, Q1H
     Route: 061
  9. SYNTHROID [Concomitant]
  10. AMBIEN [Concomitant]
  11. PRILOSEC [Suspect]
     Route: 048
  12. SEROQUEL XR [Suspect]
     Route: 048
  13. SEVELLA TITRATE [Concomitant]
     Dosage: 50 MG, 2 DAILY
  14. HYDROCHLOROTHIAZIDE [Concomitant]
     Indication: HYPERTENSION
     Route: 048
  15. EFFEXOR [Concomitant]
  16. SEROQUEL XR [Suspect]
     Route: 048
     Dates: start: 20011101
  17. LISINOPRIL [Concomitant]
     Indication: HYPERTENSION
     Route: 048
  18. SEVELLA TITRATE [Concomitant]
     Dosage: TOTAL DAILY DOSE 25MG, BID
     Route: 048
  19. CLONAZEPAM [Concomitant]
  20. LAMICTAL [Concomitant]

REACTIONS (8)
  - MALAISE [None]
  - NEUROPATHY PERIPHERAL [None]
  - DRUG INEFFECTIVE [None]
  - CRYING [None]
  - BLADDER SPASM [None]
  - LIMB DISCOMFORT [None]
  - INTENTIONAL DRUG MISUSE [None]
  - THINKING ABNORMAL [None]
